FAERS Safety Report 16338491 (Version 1)
Quarter: 2019Q2

REPORT INFORMATION
  Report Type: Spontaneous
  Country: US (occurrence: US)
  Receive Date: 20190521
  Receipt Date: 20190521
  Transmission Date: 20190711
  Serious: Yes (Death, Hospitalization)
  Sender: FDA-Public Use
  Company Number: US-ASTRAZENECA-2019SE74973

PATIENT
  Age: 26968 Day
  Sex: Male
  Weight: 77.1 kg

DRUGS (7)
  1. ATORVASTATIN [Concomitant]
     Active Substance: ATORVASTATIN
     Indication: BLOOD CHOLESTEROL ABNORMAL
     Route: 048
  2. METFORMIN [Concomitant]
     Active Substance: METFORMIN HYDROCHLORIDE
     Indication: DIABETES MELLITUS
     Route: 048
  3. DALIRESP [Suspect]
     Active Substance: ROFLUMILAST
     Indication: EMPHYSEMA
     Route: 048
  4. SPIRIVA TROTRPIUM [Concomitant]
     Indication: CHRONIC OBSTRUCTIVE PULMONARY DISEASE
     Route: 055
  5. DALIRESP [Suspect]
     Active Substance: ROFLUMILAST
     Indication: EMPHYSEMA
     Route: 048
     Dates: start: 201805
  6. PANTOPRAZOLE SODIUM. [Concomitant]
     Active Substance: PANTOPRAZOLE SODIUM
     Indication: GASTROOESOPHAGEAL REFLUX DISEASE
     Route: 048
  7. FORACORT [Concomitant]
     Active Substance: BUDESONIDE\FORMOTEROL FUMARATE
     Indication: DYSPNOEA
     Dosage: UG, TWO TIMES A DAY
     Route: 055

REACTIONS (10)
  - Off label use [Unknown]
  - Dyspnoea [Unknown]
  - Decreased appetite [Unknown]
  - Pulmonary function test decreased [Unknown]
  - Drug tolerance decreased [Unknown]
  - Chronic obstructive pulmonary disease [Fatal]
  - Weight decreased [Unknown]
  - Renal impairment [Unknown]
  - Hypophagia [Unknown]
  - Product use issue [Unknown]

NARRATIVE: CASE EVENT DATE: 20181031
